FAERS Safety Report 5238278-7 (Version None)
Quarter: 2007Q1

REPORT INFORMATION
  Report Type: 
  Country: None (occurrence: None)
  Receive Date: 20070209
  Receipt Date: 20070209
  Transmission Date: 20070707
  Serious: Yes (Death, Hospitalization)
  Sender: FDA-Public Use
  Company Number: None

PATIENT
  Age: 82 Year
  Sex: Male

DRUGS (12)
  1. CLOPIDOGREL [Suspect]
     Dosage: 75MG DAILY PO
     Route: 048
  2. CHOLINE TRISALICYLATE 750MG [Suspect]
     Dosage: 1500MG BID PO
     Route: 048
  3. COLACE [Concomitant]
  4. ASCORBIC ACID [Concomitant]
  5. NICOTINE [Concomitant]
  6. LISINOPRIL [Concomitant]
  7. TOFRANIL [Concomitant]
  8. LEVITRA [Concomitant]
  9. ZOCOR [Concomitant]
  10. FELODIPINE [Concomitant]
  11. SEROQUEL [Concomitant]
  12. SINEMET [Concomitant]

REACTIONS (5)
  - BLOOD PRESSURE INCREASED [None]
  - FALL [None]
  - INTRAVENTRICULAR HAEMORRHAGE [None]
  - SUBARACHNOID HAEMORRHAGE [None]
  - SUBDURAL HAEMATOMA [None]
